FAERS Safety Report 8018668-X (Version None)
Quarter: 2012Q1

REPORT INFORMATION
  Report Type: 
  Country: None (occurrence: None)
  Receive Date: 20120103
  Receipt Date: 20120103
  Transmission Date: 20120608
  Serious: Yes (Other)
  Sender: FDA-Public Use
  Company Number: None

PATIENT
  Age: 62 Year
  Sex: Female

DRUGS (1)
  1. NITROFURANTOIN [Suspect]
     Indication: URINARY TRACT INFECTION
     Dosage: 1 CAPSULE
     Dates: start: 20111222, end: 20111228

REACTIONS (3)
  - PRODUCT SUBSTITUTION ISSUE [None]
  - VOMITING [None]
  - MALAISE [None]
